FAERS Safety Report 5338787-6 (Version None)
Quarter: 2007Q2

REPORT INFORMATION
  Report Type: 
  Country: None (occurrence: None)
  Receive Date: 20070322
  Receipt Date: 20060410
  Transmission Date: 20071010
  Serious: Yes (Other)
  Sender: FDA-Public Use
  Company Number: 200610790BCC

PATIENT
  Age: 42 Year
  Sex: Female
  Weight: 61.2356 kg

DRUGS (1)
  1. MIDOL [Suspect]
     Indication: MUSCLE SPASMS
     Dosage: 220 MG, ONCE, ORAL
     Route: 048
     Dates: start: 20060219

REACTIONS (3)
  - DRY MOUTH [None]
  - HYPERSENSITIVITY [None]
  - SENSATION OF FOREIGN BODY [None]
